FAERS Safety Report 23252827 (Version 4)
Quarter: 2024Q2

REPORT INFORMATION
  Report Type: Spontaneous
  Country: US (occurrence: US)
  Receive Date: 20231201
  Receipt Date: 20240409
  Transmission Date: 20240716
  Serious: Yes (Hospitalization, Other)
  Sender: FDA-Public Use
  Company Number: US-Calliditas-2023CAL01510

PATIENT
  Age: 25 Year
  Sex: Female
  Weight: 50 kg

DRUGS (2)
  1. TARPEYO [Suspect]
     Active Substance: BUDESONIDE
     Indication: IgA nephropathy
     Dosage: 16 MG (4 MG CAPSULES) ONCE DAILY
     Route: 048
     Dates: start: 20230803
  2. MAGNESIUM [Concomitant]
     Active Substance: MAGNESIUM

REACTIONS (12)
  - Renal haemorrhage [Recovering/Resolving]
  - Urinary tract infection [Recovered/Resolved]
  - Hypertension [Unknown]
  - Blood urine present [Unknown]
  - Urine abnormality [Unknown]
  - General physical health deterioration [Unknown]
  - Impaired driving ability [Unknown]
  - Brain fog [Unknown]
  - Impaired work ability [Unknown]
  - Drug ineffective [Unknown]
  - Hepatic function abnormal [Not Recovered/Not Resolved]
  - End stage renal disease [Not Recovered/Not Resolved]

NARRATIVE: CASE EVENT DATE: 20231106
